FAERS Safety Report 13237197 (Version 1)
Quarter: 2017Q1

REPORT INFORMATION
  Report Type: Spontaneous
  Country: US (occurrence: US)
  Receive Date: 20170215
  Receipt Date: 20170215
  Transmission Date: 20170428
  Serious: Yes (Other)
  Sender: FDA-Public Use
  Company Number: US-PFIZER INC-2017061339

PATIENT
  Age: 12 Year
  Sex: Female

DRUGS (3)
  1. METHOTREXATE SODIUM. [Suspect]
     Active Substance: METHOTREXATE SODIUM
     Indication: HAEMATOLOGICAL MALIGNANCY
     Dosage: 15 MG/M2, UNK (DAY +1)
  2. METHOTREXATE SODIUM. [Suspect]
     Active Substance: METHOTREXATE SODIUM
     Dosage: 10 MG/M2, UNK (DAY +3,+6,+7)
  3. AMBISOME [Suspect]
     Active Substance: AMPHOTERICIN B
     Indication: PROPHYLAXIS
     Dosage: 3 MG/KG, DAILY

REACTIONS (3)
  - Acute kidney injury [Unknown]
  - Drug clearance decreased [Unknown]
  - Drug dose omission [Unknown]
